FAERS Safety Report 5081707-2 (Version None)
Quarter: 2006Q3

REPORT INFORMATION
  Report Type: 
  Country: None (occurrence: None)
  Receive Date: 20060816
  Receipt Date: 20060607
  Transmission Date: 20061208
  Serious: Yes (Hospitalization)
  Sender: FDA-Public Use
  Company Number: US-BRISTOL-MYERS SQUIBB COMPANY-13404744

PATIENT
  Age: 74 Year
  Sex: Male

DRUGS (12)
  1. ERBITUX [Suspect]
     Indication: NON-SMALL CELL LUNG CANCER
     Dosage: INTERRUPTED DUE TO THE EVENT.
     Route: 042
     Dates: start: 20060531, end: 20060531
  2. CARBOPLATIN [Suspect]
     Indication: NON-SMALL CELL LUNG CANCER
     Route: 042
     Dates: start: 20060531, end: 20060531
  3. DOCETAXEL [Suspect]
     Indication: NON-SMALL CELL LUNG CANCER
     Route: 042
     Dates: start: 20060531, end: 20060531
  4. ACIPHEX [Concomitant]
     Dates: start: 20010101
  5. ASPIRIN [Concomitant]
     Dates: start: 19990101
  6. COMBIVENT [Concomitant]
     Route: 055
     Dates: start: 20020101
  7. VENTOLIN [Concomitant]
     Route: 055
     Dates: start: 20030101
  8. ZOCOR [Concomitant]
     Dates: start: 19990101
  9. ALBUTEROL [Concomitant]
  10. ATROVENT [Concomitant]
  11. PROTONIX [Concomitant]
  12. PRAVACHOL [Concomitant]

REACTIONS (1)
  - DEHYDRATION [None]
